FAERS Safety Report 10355137 (Version 2)
Quarter: 2014Q3

REPORT INFORMATION
  Report Type: Report from Study
  Country: US (occurrence: US)
  Receive Date: 20140731
  Receipt Date: 20140731
  Transmission Date: 20150326
  Serious: Yes (Other)
  Sender: FDA-Public Use
  Company Number: PHEH2014US008771

PATIENT
  Age: 37 Year
  Sex: Female
  Weight: 58.28 kg

DRUGS (44)
  1. TOBI [Suspect]
     Active Substance: TOBRAMYCIN
     Indication: CYSTIC FIBROSIS
     Dosage: 300 MG/5 ML, BID
     Route: 055
     Dates: end: 201308
  2. IRON [Concomitant]
     Active Substance: IRON
     Dosage: 325 MG, DAILY
     Route: 048
  3. CALCIFEROL [Concomitant]
     Active Substance: ERGOCALCIFEROL
     Dosage: UNK
  4. PROTONIX [Concomitant]
     Active Substance: PANTOPRAZOLE SODIUM
     Dosage: 2 DF, BID
     Route: 048
     Dates: start: 20131226, end: 20140408
  5. VIBRAMYCIN [Concomitant]
     Active Substance: DOXYCYCLINE
     Dosage: 100 MG(1 CAPSULE), BID
     Route: 048
     Dates: start: 20131125, end: 20140408
  6. AMBIEN [Concomitant]
     Active Substance: ZOLPIDEM TARTRATE
     Dosage: 5 MG,NIGHTLY AS NEEDED
     Route: 048
     Dates: start: 20140408
  7. AZTREONAM. [Concomitant]
     Active Substance: AZTREONAM
     Dosage: UNK UKN, UNK
  8. YASMIN [Concomitant]
     Active Substance: DROSPIRENONE\ETHINYL ESTRADIOL
     Dosage: 1 DF, DAILY
     Route: 048
  9. ZOFRAN [Concomitant]
     Active Substance: ONDANSETRON HYDROCHLORIDE
     Dosage: 8 MG
     Dates: start: 20140302
  10. SINUS RINSE [Concomitant]
     Dosage: 1 DF, BID
     Route: 045
  11. PROAIR HFA [Concomitant]
     Active Substance: ALBUTEROL SULFATE
     Indication: WHEEZING
     Dosage: 2 DF, EVERY 6 HOURS AS NEEDED
     Route: 055
     Dates: start: 20140408
  12. CREON [Concomitant]
     Active Substance: PANCRELIPASE AMYLASE\PANCRELIPASE LIPASE\PANCRELIPASE PROTEASE
     Dosage: 4 DF, WITH MEALS AND 2 DF WITH SNACKS (16 EACH DAY)
     Route: 048
     Dates: start: 20140106, end: 20140408
  13. ZITHROMAX [Concomitant]
     Active Substance: AZITHROMYCIN DIHYDRATE
     Dosage: 500 MG, TAKE ON MONDAY,WEDNESDAY,FRI
     Route: 048
     Dates: start: 20130904
  14. ADVAIR HFA [Concomitant]
     Active Substance: FLUTICASONE PROPIONATE\SALMETEROL XINAFOATE
     Dosage: 0.63 MG/3ML, TAKE 3 MLS EVERY SIX HOURS AS NEEDED
     Route: 055
     Dates: start: 20131126, end: 20140408
  15. SALMETEROL [Concomitant]
     Active Substance: SALMETEROL
     Dosage: 1 DF, Q12H
     Route: 055
     Dates: start: 20140408
  16. ZOLPIDEM [Concomitant]
     Active Substance: ZOLPIDEM\ZOLPIDEM TARTRATE
     Dosage: 1 DF, AT NIGHT AS NEEDED
     Route: 048
     Dates: start: 20140408, end: 20140408
  17. CLARITYNE-D [Concomitant]
     Active Substance: LORATADINE\PSEUDOEPHEDRINE SULFATE
     Indication: HYPERSENSITIVITY
     Dosage: 1 DF, DAILY AS NEEDED
     Route: 048
     Dates: start: 20140408
  18. PULMOZYME [Concomitant]
     Active Substance: DORNASE ALFA
     Dosage: 1 AMPOULE INTO LUNGS DAILY
     Route: 055
     Dates: start: 20140331
  19. TOBI PODHALER [Suspect]
     Active Substance: TOBRAMYCIN
     Dosage: 4 DF,(4 CAPSULE INTO THE LUNGS EVERY 12 HOURS
  20. CARDIZEM [Concomitant]
     Active Substance: DILTIAZEM HYDROCHLORIDE
     Dosage: 30 MG, QID
     Dates: start: 20140324
  21. HYPERTONIC SOLUTIONS [Concomitant]
     Dosage: UNK
  22. CHLORTRIMETON [Concomitant]
     Active Substance: CHLORPHENIRAMINE MALEATE
     Dosage: 4 MG,EVERY 6 HOURS AS NEEDED
     Route: 048
  23. MEROPENEM. [Suspect]
     Active Substance: MEROPENEM
     Dosage: UKN
  24. VANCOMYCIN HYDROCHLORIDE. [Suspect]
     Active Substance: VANCOMYCIN HYDROCHLORIDE
     Dosage: UKN
     Route: 042
  25. TOBRAMYCIN [Suspect]
     Active Substance: TOBRAMYCIN
     Dosage: UNK UKN, UNK
     Route: 042
  26. XANAX [Concomitant]
     Active Substance: ALPRAZOLAM
     Dosage: 1 MG, BID AS NEEDED
     Route: 048
  27. BACTRIM [Concomitant]
     Active Substance: SULFAMETHOXAZOLE\TRIMETHOPRIM
     Dosage: UNK UKN, BID
     Route: 048
  28. ALLEGRA [Concomitant]
     Active Substance: FEXOFENADINE HYDROCHLORIDE
     Dosage: 180 MG, DAILY
     Route: 048
  29. ADVAIR HFA [Concomitant]
     Active Substance: FLUTICASONE PROPIONATE\SALMETEROL XINAFOATE
     Dosage: 0.63 MG/3ML, TAKE 3 MLS EVERY SIX HOURS AS NEEDED
     Route: 055
     Dates: start: 20140408
  30. BACTRIM DS [Concomitant]
     Active Substance: SULFAMETHOXAZOLE\TRIMETHOPRIM
     Dosage: 1 DF, BID
     Route: 048
     Dates: start: 20131117, end: 20140408
  31. TORADOL [Concomitant]
     Active Substance: KETOROLAC TROMETHAMINE
     Dosage: 10 MG
     Dates: start: 20140302, end: 20140408
  32. AMBER [Concomitant]
     Dosage: UNK
  33. OMNARIS [Concomitant]
     Active Substance: CICLESONIDE
     Dosage: 2 DF, DAILY (2 SPRAYS BY EACH NASAL ROUTE DAILY)
     Route: 045
  34. PROBIOTIC ORAL [Concomitant]
     Dosage: DAILY
     Route: 048
  35. COLISTIN [Concomitant]
     Active Substance: COLISTIN
     Dosage: UNK UKN, UNK
  36. MINOCYCLINE [Concomitant]
     Active Substance: MINOCYCLINE\MINOCYCLINE HYDROCHLORIDE
     Dosage: UNK UKN, UNK
  37. QUESTRAN [Concomitant]
     Active Substance: CHOLESTYRAMINE
     Dosage: 4 G, TID, 1 PACKET THREE TIMES DAILY
     Dates: start: 20131231
  38. XOPENEX [Concomitant]
     Active Substance: LEVALBUTEROL HYDROCHLORIDE
     Dosage: 3 ML, 6 HOURS AS NEEDED
     Route: 045
  39. VALTREX [Concomitant]
     Active Substance: VALACYCLOVIR HYDROCHLORIDE
     Dosage: 500 MG, AS NEEDED
     Dates: start: 20130729
  40. ULTRAM [Concomitant]
     Active Substance: TRAMADOL HYDROCHLORIDE
     Dosage: 50 MG,EVERY 06 HOURS AS NEEDED
     Route: 048
     Dates: start: 20140408
  41. CAYSTON [Concomitant]
     Active Substance: AZTREONAM
     Dosage: UNK UKN, UNK
  42. ATIVAN [Concomitant]
     Active Substance: LORAZEPAM
     Dosage: 0.5 MG, REPEAT IN 30 MIN IF NEEDED
     Route: 048
  43. SODIUM CHLORIDE. [Concomitant]
     Active Substance: SODIUM CHLORIDE
     Dosage: 3 ML, BID
     Route: 045
  44. PROTONIX [Concomitant]
     Active Substance: PANTOPRAZOLE SODIUM
     Dosage: 2 DF, BID
     Route: 048
     Dates: start: 20140408

REACTIONS (20)
  - Body temperature decreased [Unknown]
  - Heart rate increased [Unknown]
  - Oropharyngeal pain [Unknown]
  - Forced expiratory volume decreased [Unknown]
  - Distal intestinal obstruction syndrome [Unknown]
  - Vertigo [Unknown]
  - Sinus congestion [Unknown]
  - Decreased appetite [Unknown]
  - Sinus disorder [Unknown]
  - Tearfulness [Unknown]
  - Dizziness [Unknown]
  - Rales [Unknown]
  - Tonsillar disorder [Unknown]
  - Weight decreased [Unknown]
  - Sinus headache [Unknown]
  - Sensation of foreign body [Unknown]
  - Blood pressure increased [Unknown]
  - Hearing impaired [Unknown]
  - Hypersensitivity [Unknown]
  - Abdominal pain upper [Not Recovered/Not Resolved]

NARRATIVE: CASE EVENT DATE: 201403
